FAERS Safety Report 10674739 (Version 2)
Quarter: 2015Q1

REPORT INFORMATION
  Report Type: Spontaneous
  Country: TR (occurrence: TR)
  Receive Date: 20141224
  Receipt Date: 20150112
  Transmission Date: 20150720
  Serious: Yes (Death, Congenital Anomaly, Other)
  Sender: FDA-Public Use
  Company Number: PHHY2014TR163334

PATIENT
  Sex: Female
  Weight: 2.9 kg

DRUGS (1)
  1. DIOVAN [Suspect]
     Active Substance: VALSARTAN
     Indication: PRODUCT USED FOR UNKNOWN INDICATION
     Route: 064

REACTIONS (7)
  - Joint contracture [Unknown]
  - Respiratory distress [Fatal]
  - Premature baby [Unknown]
  - Deformity thorax [Unknown]
  - Cranial sutures widening [Unknown]
  - Pulmonary hypoplasia [Fatal]
  - Foetal exposure during pregnancy [Unknown]
